FAERS Safety Report 11399689 (Version 1)
Quarter: 2015Q3

REPORT INFORMATION
  Report Type: Spontaneous
  Country: FR (occurrence: FR)
  Receive Date: 20150820
  Receipt Date: 20150820
  Transmission Date: 20151125
  Serious: Yes (Other)
  Sender: FDA-Public Use
  Company Number: FR-PFIZER INC-2015275469

PATIENT
  Age: 36 Year
  Sex: Female

DRUGS (3)
  1. EFFEXOR LP [Suspect]
     Active Substance: VENLAFAXINE HYDROCHLORIDE
     Indication: ANXIETY
     Dosage: 37.5 MG, UNK
     Dates: start: 20150813
  2. EFFEXOR LP [Interacting]
     Active Substance: VENLAFAXINE HYDROCHLORIDE
     Indication: DEPRESSION
  3. STILNOX [Interacting]
     Active Substance: ZOLPIDEM TARTRATE
     Dosage: 0.5 DF, UNK

REACTIONS (7)
  - Drug interaction [Unknown]
  - Anxiety [Unknown]
  - Feeling drunk [Unknown]
  - Dizziness [Unknown]
  - Disease progression [Unknown]
  - Depressed mood [Unknown]
  - Hyperthyroidism [Unknown]

NARRATIVE: CASE EVENT DATE: 201508
